FAERS Safety Report 9657442 (Version 1)
Quarter: 2013Q4

REPORT INFORMATION
  Report Type: Spontaneous
  Country: US (occurrence: US)
  Receive Date: 20131030
  Receipt Date: 20131030
  Transmission Date: 20140711
  Serious: Yes (Other)
  Sender: FDA-Public Use
  Company Number: US-NAPPMUNDI-USA-2011-0077182

PATIENT
  Sex: Male

DRUGS (5)
  1. OXYCONTIN TABLETS [Suspect]
     Indication: DRUG ABUSE
     Dosage: 80 MG, 16 TO 18 TABLETS DAILY
  2. FENTANYL [Suspect]
     Indication: DRUG ABUSE
     Dosage: 800 MG, 2 TO 3 TABLETS DAILY
  3. NORCO [Suspect]
     Indication: DRUG ABUSE
     Dosage: 10 TO 12 TABLETS DAILY
  4. HEROIN [Suspect]
     Indication: SUBSTANCE ABUSE
  5. VALIUM /00017001/ [Suspect]
     Indication: DRUG ABUSE
     Dosage: 4 TO 6 TABLETS DAILY

REACTIONS (2)
  - Drug dependence [Recovering/Resolving]
  - Substance abuse [Recovering/Resolving]
